FAERS Safety Report 7872382 (Version 3)
Quarter: 2013Q3

REPORT INFORMATION
  Report Type: Spontaneous
  Country: US (occurrence: US)
  Receive Date: 20110325
  Receipt Date: 20130808
  Transmission Date: 20140515
  Serious: Yes (Death, Hospitalization)
  Sender: FDA-Public Use
  Company Number: US-B.I. PHARMACEUTICALS,INC./RIDGEFIELD-2011-BP-09089BP

PATIENT
  Sex: Female

DRUGS (2)
  1. PRADAXA [Suspect]
  2. MULTAQ [Suspect]

REACTIONS (1)
  - Gastrointestinal haemorrhage [Fatal]
